FAERS Safety Report 4634803-5 (Version None)
Quarter: 2005Q2

REPORT INFORMATION
  Report Type: 
  Country: None (occurrence: None)
  Receive Date: 20050412
  Receipt Date: 20050329
  Transmission Date: 20051028
  Serious: Yes (Hospitalization)
  Sender: FDA-Public Use
  Company Number: 2005BI001136

PATIENT
  Age: 59 Year
  Sex: Male
  Weight: 61.2356 kg

DRUGS (10)
  1. AVONEX [Suspect]
     Indication: MULTIPLE SCLEROSIS
     Dosage: 30 UG; QW; IM
     Route: 030
     Dates: start: 19980101, end: 20030801
  2. AVONEX [Suspect]
     Indication: MULTIPLE SCLEROSIS
     Dosage: 30 UG;QW; IM
     Route: 030
     Dates: start: 20030801
  3. PREVACID [Concomitant]
  4. DITROPAN [Concomitant]
  5. OXYTROL [Concomitant]
  6. VALIUM [Concomitant]
  7. AMBIEN [Concomitant]
  8. DDAVP [Concomitant]
  9. IMIPRAMINE [Concomitant]
  10. CELL CEPT MYCOPHENOLATE MOFETIL (NOS) [Concomitant]

REACTIONS (9)
  - ARTHRITIS [None]
  - BLADDER CANCER [None]
  - BLOOD CHOLESTEROL INCREASED [None]
  - BLOOD PRESSURE INCREASED [None]
  - DIPLOPIA [None]
  - FATIGUE [None]
  - RECTAL PROLAPSE [None]
  - SENSORY DISTURBANCE [None]
  - VISUAL ACUITY REDUCED [None]
